FAERS Safety Report 5228417-6 (Version None)
Quarter: 2007Q1

REPORT INFORMATION
  Report Type: 
  Country: None (occurrence: None)
  Receive Date: 20070131
  Receipt Date: 20070115
  Transmission Date: 20070707
  Serious: Yes (Other)
  Sender: FDA-Public Use
  Company Number: 2007JP000249

PATIENT
  Age: 61 Year
  Sex: Female

DRUGS (7)
  1. PROGRAF [Suspect]
     Indication: RENAL TRANSPLANT
     Dosage: SEE IMAGE
  2. PROGRAF [Suspect]
     Indication: RENAL TRANSPLANT
     Dosage: 0.02 MG/KG UNKNOWN/D, IV DRIP
     Route: 041
  3. MYCOPHENOLATE MOFETIL (MYCOPHENOLATE MOFETIL) FORMULATION [Concomitant]
  4. CYCLOPHOSPHAMIDE [Concomitant]
  5. METHYLPREDNISOLONE [Concomitant]
  6. MIZORIBINE (MIZORIBINE) FORMULATION [Concomitant]
  7. BAYASPIRIN FORMULATION UNKNOWN [Concomitant]

REACTIONS (3)
  - INTESTINAL OBSTRUCTION [None]
  - POST PROCEDURAL COMPLICATION [None]
  - VARICELLA [None]
